FAERS Safety Report 6215985-0 (Version None)
Quarter: 2009Q2

REPORT INFORMATION
  Report Type: 
  Country: None (occurrence: None)
  Receive Date: 20090605
  Receipt Date: 20090602
  Transmission Date: 20091009
  Serious: Yes (Hospitalization)
  Sender: FDA-Public Use
  Company Number: DE-BRISTOL-MYERS SQUIBB COMPANY-14646913

PATIENT
  Age: 45 Year
  Sex: Male
  Weight: 83 kg

DRUGS (11)
  1. CETUXIMAB [Suspect]
     Indication: NON-SMALL CELL LUNG CANCER STAGE IV
     Dosage: INITIATED ON 04MAY09 (DOSE-400 MG/M2)D1 CYC 1 ON DAY 1 OF CYCLE 1: 250MG/M2 WKLY
     Route: 042
     Dates: start: 20090519, end: 20090519
  2. CISPLATIN [Suspect]
     Indication: NON-SMALL CELL LUNG CANCER STAGE IV
     Dosage: ON DAY 1 EVERY 21 DAYS.
     Route: 042
     Dates: start: 20090504, end: 20090504
  3. ALIMTA [Suspect]
     Indication: NON-SMALL CELL LUNG CANCER STAGE IV
     Dosage: ON DAY 1 OF 21 DAYS VIAL
     Route: 042
     Dates: start: 20090504, end: 20090504
  4. FOLIC ACID [Concomitant]
     Dates: start: 20090421
  5. VITAMIN B-12 [Concomitant]
     Dates: start: 20090421
  6. CORTICOSTEROID [Concomitant]
     Dates: start: 20090518, end: 20090520
  7. ANTIHISTAMINE NOS [Concomitant]
     Dates: start: 20090519, end: 20090519
  8. OXYGESIC [Concomitant]
     Indication: ANALGESIA
     Dates: start: 20090421
  9. IBUPROFEN [Concomitant]
     Indication: ANALGESIA
     Dates: start: 20090421
  10. NOVAMINSULFON [Concomitant]
     Indication: ANALGESIA
     Dates: start: 20090421
  11. PANTOZOL [Concomitant]
     Indication: GASTRITIS PROPHYLAXIS
     Dates: start: 20090420

REACTIONS (3)
  - ANAEMIA [None]
  - CHILLS [None]
  - TREMOR [None]
